FAERS Safety Report 24342623 (Version 1)
Quarter: 2024Q3

REPORT INFORMATION
  Report Type: Spontaneous
  Country: BR (occurrence: BR)
  Receive Date: 20240920
  Receipt Date: 20240920
  Transmission Date: 20241017
  Serious: Yes (Hospitalization, Other)
  Sender: MERCK
  Company Number: None

PATIENT
  Age: 62 Year
  Sex: Male
  Weight: 64.9 kg

DRUGS (1)
  1. KEYTRUDA [Suspect]
     Active Substance: PEMBROLIZUMAB
     Dosage: 8TH CYCLE, 160 MG INTRAVENOUS THROUGH INFUSION PUMP WITH FILTER IN 30 MINUTES, WITH SALINE SOLUTION
     Route: 042
     Dates: start: 20240702, end: 20240702

REACTIONS (4)
  - Odynophagia [Recovered/Resolved]
  - Decreased appetite [Recovered/Resolved]
  - Nausea [Recovered/Resolved]
  - Vomiting [Recovered/Resolved]

NARRATIVE: CASE EVENT DATE: 20240731
